FAERS Safety Report 22269762 (Version 1)
Quarter: 2023Q2

REPORT INFORMATION
  Report Type: Spontaneous
  Country: IE (occurrence: IE)
  Receive Date: 20230501
  Receipt Date: 20230501
  Transmission Date: 20230722
  Serious: Yes (Hospitalization, Other)
  Sender: FDA-Public Use
  Company Number: IE-MYLANLABS-2023M1045086

PATIENT
  Sex: Male

DRUGS (1)
  1. CLOZARIL [Suspect]
     Active Substance: CLOZAPINE
     Indication: Schizophrenia
     Dosage: UNK
     Route: 048
     Dates: start: 20230111, end: 20230421

REACTIONS (5)
  - Schizophrenia [Unknown]
  - Mental disorder [Unknown]
  - Salivary hypersecretion [Unknown]
  - Fall [Unknown]
  - Therapeutic response decreased [Unknown]
